FAERS Safety Report 23694436 (Version 1)
Quarter: 2024Q2

REPORT INFORMATION
  Report Type: Spontaneous
  Country: US (occurrence: US)
  Receive Date: 20240401
  Receipt Date: 20240401
  Transmission Date: 20240715
  Serious: No
  Sender: FDA-Public Use
  Company Number: US-BAUSCHBL-2024BNL003916

PATIENT
  Age: 70 Year
  Sex: Female

DRUGS (2)
  1. MIEBO [Suspect]
     Active Substance: PERFLUOROHEXYLOCTANE
     Indication: Dry eye
     Route: 047
     Dates: start: 202402
  2. SICCAFORTE [Concomitant]
     Indication: Product used for unknown indication

REACTIONS (2)
  - Lacrimation increased [Unknown]
  - Eye disorder [Unknown]
